FAERS Safety Report 4302129-5 (Version None)
Quarter: 2004Q1

REPORT INFORMATION
  Report Type: 
  Country: None (occurrence: None)
  Receive Date: 20040220
  Receipt Date: 20040217
  Transmission Date: 20041129
  Serious: Yes (Hospitalization)
  Sender: FDA-Public Use
  Company Number: STA-AE-04-MTX-066

PATIENT
  Age: 76 Year
  Sex: Female

DRUGS (4)
  1. RHEUMATREX [Suspect]
     Indication: RHEUMATOID ARTHRITIS
     Dosage: 6 MG 1 X PER 1 WK, ORAL
     Route: 048
     Dates: start: 20031015
  2. PREDNISOLONE [Concomitant]
  3. SOLETON (ZALTOPROFEN) [Concomitant]
  4. LOXONIN (LOXOPROFEN SODIUM) [Concomitant]

REACTIONS (4)
  - BONE MARROW DEPRESSION [None]
  - OEDEMA PERIPHERAL [None]
  - PURULENCE [None]
  - SOFT TISSUE INFECTION [None]
